FAERS Safety Report 9642838 (Version 2)
Quarter: 2013Q4

REPORT INFORMATION
  Report Type: Spontaneous
  Country: JP (occurrence: JP)
  Receive Date: 20131024
  Receipt Date: 20131111
  Transmission Date: 20140711
  Serious: Yes (Other)
  Sender: FDA-Public Use
  Company Number: PHHY2013JP118999

PATIENT
  Age: 63 Year
  Sex: Female

DRUGS (1)
  1. SANDOSTATIN [Suspect]
     Indication: PANCREATIC FISTULA
     Dosage: UNK UKN, UNK
     Route: 058

REACTIONS (1)
  - Pulmonary artery thrombosis [Recovering/Resolving]
